FAERS Safety Report 15042420 (Version 1)
Quarter: 2018Q2

REPORT INFORMATION
  Report Type: Spontaneous
  Country: US (occurrence: US)
  Receive Date: 20180621
  Receipt Date: 20180621
  Transmission Date: 20180711
  Serious: Yes (Other)
  Sender: FDA-Public Use
  Company Number: US-CURIUM PHARMACEUTICALS-199200108

PATIENT

DRUGS (1)
  1. TECHNESCAN PYP [Suspect]
     Active Substance: TECHNETIUM TC-99M PYROPHOSPHATE

REACTIONS (4)
  - Seizure [Unknown]
  - Dyspnoea [Unknown]
  - Vomiting [Unknown]
  - Bronchospasm [Unknown]
